FAERS Safety Report 14246550 (Version 1)
Quarter: 2017Q4

REPORT INFORMATION
  Report Type: Spontaneous
  Country: US (occurrence: US)
  Receive Date: 20171201
  Receipt Date: 20171201
  Transmission Date: 20180321
  Serious: Yes (Hospitalization, Other)
  Sender: FDA-Public Use
  Company Number: None

PATIENT
  Sex: Female
  Weight: 83.25 kg

DRUGS (3)
  1. LOSARTAN. [Concomitant]
     Active Substance: LOSARTAN
  2. OMEPRAZOLE. [Concomitant]
     Active Substance: OMEPRAZOLE
  3. OTEZLA [Suspect]
     Active Substance: APREMILAST
     Indication: PSORIASIS
     Dosage: ?          QUANTITY:1 TABLET(S);?
     Route: 048
     Dates: start: 20170825, end: 20171017

REACTIONS (8)
  - Nausea [None]
  - Gastrointestinal disorder [None]
  - Impaired work ability [None]
  - Malaise [None]
  - Loss of personal independence in daily activities [None]
  - Psoriasis [None]
  - Pain [None]
  - Pancreatitis [None]

NARRATIVE: CASE EVENT DATE: 20171017
